FAERS Safety Report 23686672 (Version 1)
Quarter: 2024Q1

REPORT INFORMATION
  Report Type: Spontaneous
  Country: DE (occurrence: DE)
  Receive Date: 20240329
  Receipt Date: 20240329
  Transmission Date: 20240410
  Serious: Yes (Other)
  Sender: FDA-Public Use
  Company Number: None

PATIENT
  Age: 34 Year
  Sex: Male

DRUGS (16)
  1. SERTRALINE [Interacting]
     Active Substance: SERTRALINE HYDROCHLORIDE
     Indication: Product used for unknown indication
  2. DIAZEPAM [Interacting]
     Active Substance: DIAZEPAM
     Indication: Product used for unknown indication
  3. PREGABALIN [Interacting]
     Active Substance: PREGABALIN
     Indication: Product used for unknown indication
  4. DRONABINOL [Suspect]
     Active Substance: DRONABINOL
     Indication: Product used for unknown indication
  5. ALPRAZOLAM [Interacting]
     Active Substance: ALPRAZOLAM
     Indication: Product used for unknown indication
  6. .ALPHA.-PYRROLIDINOPENTIOPHENONE [Suspect]
     Active Substance: .ALPHA.-PYRROLIDINOPENTIOPHENONE
     Indication: Product used for unknown indication
  7. LORAZEPAM [Interacting]
     Active Substance: LORAZEPAM
     Indication: Product used for unknown indication
  8. LEVOMETHADONE HYDROCHLORIDE [Interacting]
     Active Substance: LEVOMETHADONE HYDROCHLORIDE
     Indication: Product used for unknown indication
  9. MIRTAZAPINE [Interacting]
     Active Substance: MIRTAZAPINE
     Indication: Product used for unknown indication
  10. TEMAZEPAM [Interacting]
     Active Substance: TEMAZEPAM
     Indication: Product used for unknown indication
  11. COCAINE [Interacting]
     Active Substance: COCAINE
     Indication: Product used for unknown indication
  12. MORPHINE [Interacting]
     Active Substance: MORPHINE
     Indication: Product used for unknown indication
  13. OXAZEPAM [Interacting]
     Active Substance: OXAZEPAM
     Indication: Product used for unknown indication
  14. NORDAZEPAM [Interacting]
     Active Substance: NORDAZEPAM
     Indication: Product used for unknown indication
  15. CODEINE [Interacting]
     Active Substance: CODEINE
     Indication: Product used for unknown indication
  16. BENZOYLECGONINE [Interacting]
     Active Substance: BENZOYLECGONINE

REACTIONS (7)
  - Gait disturbance [Unknown]
  - Vestibular disorder [Unknown]
  - Drug abuse [Unknown]
  - Restlessness [Unknown]
  - Bradykinesia [Unknown]
  - Dysarthria [Unknown]
  - Drug dependence [Unknown]
